FAERS Safety Report 4459188-9 (Version None)
Quarter: 2004Q3

REPORT INFORMATION
  Report Type: 
  Country: None (occurrence: None)
  Receive Date: 20040920
  Receipt Date: 20040920
  Transmission Date: 20050211
  Serious: Yes (Other)
  Sender: FDA-Public Use
  Company Number: None

PATIENT
  Age: 26 Year
  Sex: Female
  Weight: 56.6996 kg

DRUGS (2)
  1. LEXAPRO [Suspect]
     Indication: DEPRESSION
     Dosage: 20 MG DAILY
     Dates: start: 20040420, end: 20040704
  2. LEXAPRO [Suspect]
     Indication: DEPRESSION
     Dosage: 10 DAILY
     Dates: start: 20040320, end: 20040419

REACTIONS (17)
  - ABNORMAL BEHAVIOUR [None]
  - ANGER [None]
  - CONDITION AGGRAVATED [None]
  - CRYING [None]
  - DELUSION [None]
  - DEPRESSED MOOD [None]
  - DISTURBANCE IN ATTENTION [None]
  - DRUG INEFFECTIVE [None]
  - FEELING ABNORMAL [None]
  - FEELING OF DESPAIR [None]
  - IRRITABILITY [None]
  - LOSS OF EMPLOYMENT [None]
  - MARKEDLY REDUCED DIETARY INTAKE [None]
  - PERSONALITY CHANGE [None]
  - SOCIAL FEAR [None]
  - THINKING ABNORMAL [None]
  - WEIGHT DECREASED [None]
